FAERS Safety Report 5601511-3 (Version None)
Quarter: 2008Q1

REPORT INFORMATION
  Report Type: 
  Country: None (occurrence: None)
  Receive Date: 20080124
  Receipt Date: 20070628
  Transmission Date: 20080703
  Serious: No
  Sender: FDA-Public Use
  Company Number: US-BAYER-200712111BCC

PATIENT
  Sex: Female

DRUGS (2)
  1. ALEVE COLD AND SINUS [Suspect]
     Indication: SINUS HEADACHE
     Route: 048
     Dates: end: 20061201
  2. ALEVE COLD AND SINUS [Suspect]
     Route: 048
     Dates: start: 20070301

REACTIONS (1)
  - MENSTRUATION IRREGULAR [None]
